FAERS Safety Report 4487642-2 (Version None)
Quarter: 2004Q4

REPORT INFORMATION
  Report Type: 
  Country: None (occurrence: None)
  Receive Date: 20041025
  Receipt Date: 20041007
  Transmission Date: 20050328
  Serious: Yes (Other)
  Sender: FDA-Public Use
  Company Number: 8007577

PATIENT
  Age: 25 Year
  Sex: Female

DRUGS (2)
  1. LORTAB [Suspect]
     Indication: BACK PAIN
     Dosage: 10 MG PRN PO
     Route: 048
     Dates: start: 20020101
  2. LORTAB [Suspect]
     Indication: BACK PAIN
     Dates: start: 20040801, end: 20040801

REACTIONS (1)
  - SUICIDE ATTEMPT [None]
